FAERS Safety Report 7011440-9 (Version None)
Quarter: 2010Q3

REPORT INFORMATION
  Report Type: 
  Country: None (occurrence: None)
  Receive Date: 20100922
  Receipt Date: 20100922
  Transmission Date: 20110219
  Serious: No
  Sender: FDA-Public Use
  Company Number: None

PATIENT

DRUGS (1)
  1. ZYPREXA [Suspect]
     Dosage: ZYPREXA 7.5 MG PO DAILY
     Route: 048

REACTIONS (3)
  - IDIOSYNCRATIC DRUG REACTION [None]
  - PROTRUSION TONGUE [None]
  - RESTLESSNESS [None]
